FAERS Safety Report 6369177-5 (Version None)
Quarter: 2009Q3

REPORT INFORMATION
  Report Type: 
  Country: None (occurrence: None)
  Receive Date: 20090922
  Receipt Date: 20090314
  Transmission Date: 20100115
  Serious: Yes (Other)
  Sender: FDA-Public Use
  Company Number: TR-ELI_LILLY_AND_COMPANY-TR200906006670

PATIENT
  Age: 70 Year
  Sex: Male

DRUGS (5)
  1. HUMALOG [Suspect]
     Indication: DIABETES MELLITUS
     Dosage: 8 IU, EACH MORNING
     Route: 058
     Dates: start: 20070101
  2. HUMALOG [Suspect]
     Dosage: 8 U, OTHER (NOON)
     Route: 058
     Dates: start: 20070101
  3. HUMALOG [Suspect]
     Dosage: 8 IU, EACH EVENING
     Route: 058
     Dates: start: 20070101
  4. LANTUS [Concomitant]
     Dosage: UNK, UNKNOWN
     Route: 065
  5. ANTIHYPERTENSIVES [Concomitant]
     Indication: HYPERTENSION

REACTIONS (4)
  - BLINDNESS [None]
  - DIZZINESS [None]
  - INJECTION SITE HAEMORRHAGE [None]
  - INJECTION SITE PAIN [None]
